FAERS Safety Report 17333098 (Version 1)
Quarter: 2020Q1

REPORT INFORMATION
  Report Type: Spontaneous
  Country: US (occurrence: US)
  Receive Date: 20200128
  Receipt Date: 20200128
  Transmission Date: 20200409
  Serious: No
  Sender: FDA-Public Use
  Company Number: US-GLAXOSMITHKLINE-US2020013813

PATIENT
  Age: 54 Year
  Sex: Female

DRUGS (2)
  1. ABREVA [Suspect]
     Active Substance: DOCOSANOL
     Dosage: UNK
     Dates: start: 20200118, end: 20200121
  2. ABREVA [Suspect]
     Active Substance: DOCOSANOL
     Indication: ORAL HERPES
     Dosage: UNK
     Dates: start: 20200118, end: 20200121

REACTIONS (3)
  - Condition aggravated [Not Recovered/Not Resolved]
  - Oral herpes [Not Recovered/Not Resolved]
  - Inappropriate schedule of product administration [Unknown]

NARRATIVE: CASE EVENT DATE: 20200118
